FAERS Safety Report 9465298 (Version 4)
Quarter: 2013Q3

REPORT INFORMATION
  Report Type: Spontaneous
  Country: JP (occurrence: JP)
  Receive Date: 20130820
  Receipt Date: 20130903
  Transmission Date: 20140515
  Serious: Yes (Other)
  Sender: FDA-Public Use
  Company Number: JP-ROCHE-1246394

PATIENT
  Age: 79 Year
  Sex: Male
  Weight: 51 kg

DRUGS (10)
  1. MIRCERA [Suspect]
     Indication: NEPHROGENIC ANAEMIA
     Route: 058
     Dates: start: 20130522, end: 20130522
  2. FEBURIC [Concomitant]
     Route: 048
     Dates: start: 201207
  3. LIPITOR [Concomitant]
     Route: 048
  4. LASIX [Concomitant]
     Indication: DIABETIC NEPHROPATHY
     Route: 048
  5. BAYASPIRIN [Concomitant]
     Route: 048
  6. BLOPRESS [Concomitant]
     Indication: DIABETIC NEPHROPATHY
     Route: 048
  7. ALLEGRA [Concomitant]
     Indication: PROPHYLAXIS
     Route: 048
     Dates: start: 201207
  8. VOGLIBOSE [Concomitant]
     Indication: DIABETIC NEPHROPATHY
     Route: 048
  9. THYRADIN [Concomitant]
     Route: 048
     Dates: start: 201209
  10. NOVOLIN R [Concomitant]
     Indication: DIABETIC NEPHROPATHY
     Route: 058
     Dates: start: 201212

REACTIONS (1)
  - Eosinophilia [Recovering/Resolving]
